FAERS Safety Report 5404995-9 (Version None)
Quarter: 2007Q3

REPORT INFORMATION
  Report Type: 
  Country: None (occurrence: None)
  Receive Date: 20070803
  Receipt Date: 20070725
  Transmission Date: 20080115
  Serious: Yes (Death, Hospitalization)
  Sender: FDA-Public Use
  Company Number: US-BRISTOL-MYERS SQUIBB COMPANY-13863568

PATIENT
  Age: 54 Year
  Sex: Male

DRUGS (2)
  1. CEFEPIME [Suspect]
     Indication: FEBRILE NEUTROPENIA
  2. PHENYTOIN [Suspect]
     Indication: STATUS EPILEPTICUS

REACTIONS (2)
  - DEATH [None]
  - STATUS EPILEPTICUS [None]
